FAERS Safety Report 6055136-9 (Version None)
Quarter: 2009Q1

REPORT INFORMATION
  Report Type: 
  Country: None (occurrence: None)
  Receive Date: 20090128
  Receipt Date: 20090114
  Transmission Date: 20090719
  Serious: Yes (Death)
  Sender: FDA-Public Use
  Company Number: JP-ABBOTT-09P-087-0499882-00

PATIENT
  Sex: Male

DRUGS (9)
  1. LEUPROLIDE ACETATE [Suspect]
     Indication: PROSTATE CANCER STAGE II
     Dates: start: 20061212, end: 20080116
  2. CASODEX [Concomitant]
     Indication: PROSTATE CANCER STAGE II
     Route: 048
     Dates: start: 20061212, end: 20080420
  3. ADALAT [Concomitant]
     Indication: HYPERTENSION
     Route: 048
     Dates: end: 20080420
  4. LOCHOL [Concomitant]
     Indication: HYPERLIPIDAEMIA
     Route: 048
     Dates: end: 20080420
  5. BUP-4 [Concomitant]
     Indication: NOCTURIA
     Route: 048
     Dates: start: 20070501, end: 20070703
  6. VESICARE [Concomitant]
     Indication: NOCTURIA
     Route: 048
     Dates: start: 20070704, end: 20080420
  7. LAXOBERON [Concomitant]
     Indication: CONSTIPATION
     Route: 048
     Dates: end: 20080420
  8. APLACE [Concomitant]
     Indication: GASTRITIS
     Route: 048
     Dates: start: 20061212, end: 20070703
  9. METHYLCOBAL [Concomitant]
     Indication: DRUG USE FOR UNKNOWN INDICATION
     Route: 048
     Dates: end: 20080420

REACTIONS (1)
  - BRONCHITIS [None]
